FAERS Safety Report 6498169-0 (Version None)
Quarter: 2009Q4

REPORT INFORMATION
  Report Type: 
  Country: None (occurrence: None)
  Receive Date: 20091125
  Receipt Date: 20090123
  Transmission Date: 20100525
  Serious: Yes (Other)
  Sender: FDA-Public Use
  Company Number: 2009BH001294

PATIENT
  Age: 71 Year
  Sex: Male

DRUGS (9)
  1. DIANEAL [Suspect]
     Indication: RENAL FAILURE
     Dosage: 11.5 L; EVERY DAY; IP
     Route: 033
     Dates: start: 20080731
  2. HEPARIN [Concomitant]
  3. HECTOROL [Concomitant]
  4. EPOGEN [Concomitant]
  5. FOLIC ACID [Concomitant]
  6. RENAGEL [Concomitant]
  7. ASPIRIN [Concomitant]
  8. THYROID THERAPY [Concomitant]
  9. COQ10 [Concomitant]

REACTIONS (1)
  - PERITONITIS BACTERIAL [None]
